FAERS Safety Report 16100695 (Version 2)
Quarter: 2019Q2

REPORT INFORMATION
  Report Type: Spontaneous
  Country: JP (occurrence: JP)
  Receive Date: 20190321
  Receipt Date: 20190510
  Transmission Date: 20190711
  Serious: Yes (Death, Hospitalization)
  Sender: FDA-Public Use
  Company Number: JP-PFIZER INC-2019116350

PATIENT
  Age: 75 Year
  Sex: Female
  Weight: 66 kg

DRUGS (11)
  1. RHEUMATREX [Suspect]
     Active Substance: METHOTREXATE SODIUM
     Indication: RHEUMATOID ARTHRITIS
     Dosage: 4 MG (2CP), WEEKLY
     Route: 048
     Dates: end: 20181026
  2. PREDONINE [Concomitant]
     Active Substance: PREDNISOLONE
  3. VANCOMYCIN HYDROCHLORIDE. [Concomitant]
     Active Substance: VANCOMYCIN HYDROCHLORIDE
  4. HYSETIN [Suspect]
     Active Substance: CHLORAMPHENICOL
     Indication: INTRAUTERINE INFECTION
     Dosage: 100 MG, 1X/DAY
     Route: 067
     Dates: start: 20181006, end: 20181102
  5. REMINYL [Concomitant]
     Active Substance: GALANTAMINE
  6. TAKECAB [Concomitant]
     Active Substance: VONOPRAZAN FUMURATE
  7. MEROPENEM MEIJI [Concomitant]
     Active Substance: MEROPENEM
  8. CUBICIN [Concomitant]
     Active Substance: DAPTOMYCIN
  9. BAYASPIRIN [Concomitant]
     Active Substance: ASPIRIN
  10. ANAEMETRO [Concomitant]
     Active Substance: METRONIDAZOLE
  11. CRAVIT [Concomitant]
     Active Substance: LEVOFLOXACIN

REACTIONS (1)
  - Aplastic anaemia [Fatal]

NARRATIVE: CASE EVENT DATE: 20181026
